FAERS Safety Report 11259013 (Version 2)
Quarter: 2015Q3

REPORT INFORMATION
  Report Type: Spontaneous
  Country: BR (occurrence: BR)
  Receive Date: 20150710
  Receipt Date: 20150828
  Transmission Date: 20151125
  Serious: Yes (Hospitalization)
  Sender: FDA-Public Use
  Company Number: BR-PFIZER INC-2015070840

PATIENT
  Age: 37 Year
  Sex: Male
  Weight: 63 kg

DRUGS (2)
  1. SUTENT [Suspect]
     Active Substance: SUNITINIB MALATE
     Indication: PANCREATIC NEUROENDOCRINE TUMOUR
     Dosage: 50 MG, CYCLIC, 4 PER 2
     Route: 048
     Dates: start: 20150213, end: 2015
  2. SUTENT [Suspect]
     Active Substance: SUNITINIB MALATE
     Dosage: UNK
     Dates: start: 2015, end: 2015

REACTIONS (5)
  - Glossodynia [Unknown]
  - Disease progression [Unknown]
  - Pancreatic neuroendocrine tumour [Unknown]
  - Oesophageal ulcer [Unknown]
  - Dysgeusia [Unknown]

NARRATIVE: CASE EVENT DATE: 2015
